FAERS Safety Report 16791409 (Version 2)
Quarter: 2019Q3

REPORT INFORMATION
  Report Type: Spontaneous
  Country: US (occurrence: US)
  Receive Date: 20190910
  Receipt Date: 20190919
  Transmission Date: 20191005
  Serious: Yes (Hospitalization)
  Sender: FDA-Public Use
  Company Number: US-VERTEX PHARMACEUTICALS-2019-008522

PATIENT
  Age: 31 Year
  Sex: Male

DRUGS (5)
  1. CEFTAZIDIME. [Concomitant]
     Active Substance: CEFTAZIDIME
  2. SYMDEKO [Suspect]
     Active Substance: IVACAFTOR\TEZACAFTOR
     Indication: CYSTIC FIBROSIS
     Dosage: 100MG TEZACAFTOR/150MG IVACAFTOR QAM; 150MG IVACAFTOR QPM
     Route: 048
     Dates: start: 20180327
  3. BETHKIS [Suspect]
     Active Substance: TOBRAMYCIN
     Indication: CYSTIC FIBROSIS
     Dosage: 300 MG/4 ML, BID
     Route: 048
     Dates: start: 20160927
  4. TOBRAMYCIN. [Concomitant]
     Active Substance: TOBRAMYCIN
  5. ENSURE [Concomitant]
     Active Substance: AMINO ACIDS\DEXTROSE\ELECTROLYTES NOS\SOYBEAN OIL\VITAMINS

REACTIONS (1)
  - Infective pulmonary exacerbation of cystic fibrosis [Recovered/Resolved]

NARRATIVE: CASE EVENT DATE: 20190820
